FAERS Safety Report 4440278-1 (Version None)
Quarter: 2004Q3

REPORT INFORMATION
  Report Type: 
  Country: None (occurrence: None)
  Receive Date: 20040903
  Receipt Date: 20040625
  Transmission Date: 20050211
  Serious: No
  Sender: FDA-Public Use
  Company Number: US-GLAXOSMITHKLINE-A0516107A

PATIENT
  Sex: Female

DRUGS (2)
  1. REQUIP [Suspect]
     Indication: ILL-DEFINED DISORDER
     Route: 048
     Dates: start: 20040625
  2. SYNTHROID [Concomitant]

REACTIONS (4)
  - MEDICATION ERROR [None]
  - NAUSEA [None]
  - VOMITING [None]
  - YAWNING [None]
